FAERS Safety Report 6117591-5 (Version None)
Quarter: 2009Q1

REPORT INFORMATION
  Report Type: 
  Country: None (occurrence: None)
  Receive Date: 20090314
  Receipt Date: 20090123
  Transmission Date: 20090719
  Serious: No
  Sender: FDA-Public Use
  Company Number: US-ABBOTT-09P-163-0499623-00

PATIENT
  Sex: Female
  Weight: 124.85 kg

DRUGS (14)
  1. HUMIRA [Suspect]
     Indication: RHEUMATOID ARTHRITIS
     Route: 058
     Dates: start: 20050101
  2. HUMIRA [Suspect]
     Route: 058
  3. DARVOCET [Concomitant]
     Indication: PAIN
  4. ALEVE [Concomitant]
     Indication: PAIN
  5. LYRICA [Concomitant]
     Indication: PAIN OF SKIN
  6. LYRICA [Concomitant]
     Indication: BURNING SENSATION
  7. LYRICA [Concomitant]
     Indication: PAIN IN EXTREMITY
  8. FOLIC ACID [Concomitant]
     Indication: RHEUMATOID ARTHRITIS
  9. KLOR-CON [Concomitant]
     Indication: MUSCLE SPASMS
  10. GLUCOSAMINE + CHONDROITIN [Concomitant]
     Indication: CHONDROPATHY
  11. ESTER C [Concomitant]
     Indication: IMMUNE SYSTEM DISORDER
  12. LEXAPRO [Concomitant]
     Indication: ANXIOLYTIC THERAPY
  13. LISINOPRIL AND HYDROCHLOROTHIAZIDE [Concomitant]
     Indication: HYPERTENSION
  14. LANTUS [Concomitant]
     Indication: DIABETES MELLITUS
     Dosage: 30 UNITS IN MORNING AND 28 UNITS AT NIGHT

REACTIONS (1)
  - RHEUMATOID ARTHRITIS [None]
